FAERS Safety Report 5151207-X (Version None)
Quarter: 2006Q4

REPORT INFORMATION
  Report Type: 
  Country: None (occurrence: None)
  Receive Date: 20061114
  Receipt Date: 20061114
  Transmission Date: 20070319
  Serious: Yes (Life-Threatening, Hospitalization)
  Sender: FDA-Public Use
  Company Number: None

PATIENT
  Age: 43 Year
  Sex: Male
  Weight: 95.2554 kg

DRUGS (1)
  1. ORAL SODIUM PHOSPHATE   PRODUCT FOR BOWEL CLEANSING [Suspect]
     Indication: COLONOSCOPY
     Dosage: 1 BOTTLE    1X   PO
     Route: 048
     Dates: start: 20060312, end: 20060312

REACTIONS (6)
  - ACUTE MYOCARDIAL INFARCTION [None]
  - BLOOD POTASSIUM DECREASED [None]
  - CHEST PAIN [None]
  - PAIN [None]
  - POLYP [None]
  - PROCEDURAL COMPLICATION [None]
